FAERS Safety Report 6954183 (Version 4)
Quarter: 2014Q4

REPORT INFORMATION
  Report Type: Spontaneous
  Country: US (occurrence: US)
  Receive Date: 20090327
  Receipt Date: 20141209
  Transmission Date: 20150529
  Serious: Yes (Other)
  Sender: FDA-Public Use
  Company Number: US-ASTRAZENECA-2009UW07528

PATIENT
  Age: 80 Year
  Sex: Female
  Weight: 66.7 kg

DRUGS (28)
  1. TOPROL XL [Suspect]
     Active Substance: METOPROLOL SUCCINATE
     Indication: ANGINA PECTORIS
     Route: 048
     Dates: start: 2001
  2. PLAVIX [Concomitant]
     Active Substance: CLOPIDOGREL BISULFATE
     Dates: start: 2010
  3. VITAMIN D3 [Concomitant]
     Active Substance: CHOLECALCIFEROL
     Dosage: 3000, INTERNATIONAL UNITS, DAILY
  4. SUPER VITAMIN B COMPLEX [Concomitant]
     Dosage: 1 DAILY
  5. TOPROL XL [Suspect]
     Active Substance: METOPROLOL SUCCINATE
     Indication: ANGINA PECTORIS
     Route: 048
  6. CORDARONE [Concomitant]
     Active Substance: AMIODARONE HYDROCHLORIDE
     Dates: start: 2003
  7. LEVOTHYROXINE [Concomitant]
     Active Substance: LEVOTHYROXINE
     Indication: THYROID DISORDER
     Dates: start: 2011
  8. TOPROL XL [Suspect]
     Active Substance: METOPROLOL SUCCINATE
     Indication: ANGINA PECTORIS
     Route: 048
     Dates: start: 199410
  9. TOPROL XL [Suspect]
     Active Substance: METOPROLOL SUCCINATE
     Indication: ANGINA PECTORIS
     Route: 048
     Dates: start: 2004
  10. LIPITOR [Concomitant]
     Active Substance: ATORVASTATIN CALCIUM
     Indication: BLOOD TRIGLYCERIDES INCREASED
     Dates: start: 2003
  11. NTIRO [Concomitant]
     Indication: ANGINA PECTORIS
     Dosage: .02MG/HR
     Route: 062
     Dates: start: 2006
  12. OS-CAL [Concomitant]
  13. LASIX [Concomitant]
     Active Substance: FUROSEMIDE
  14. ALAWAY [Concomitant]
     Active Substance: KETOTIFEN FUMARATE
     Dosage: 1 DROP IN RIGHT EYE BID
  15. TIMOLOL MALEATE OPTHALMIC SOLUNTION [Concomitant]
     Indication: GLAUCOMA
     Dosage: 1 DROP IN LEFT EYE BID
     Route: 047
  16. FOCUS SELECT MACULAR FORMULAR WITH GLUTENE [Concomitant]
     Indication: MACULAR DEGENERATION
  17. TOPROL XL [Suspect]
     Active Substance: METOPROLOL SUCCINATE
     Indication: ANGINA PECTORIS
     Route: 048
     Dates: start: 2001
  18. XANAX [Concomitant]
     Active Substance: ALPRAZOLAM
     Indication: ANXIETY
  19. XANAX [Concomitant]
     Active Substance: ALPRAZOLAM
     Indication: ANXIETY
     Dosage: 0.125 MILLIGRAMS HALF OF A 0.25 MG TABLET TWICE DAILY
     Dates: start: 2001
  20. ASPIRIN / BABY ASPIRIN [Concomitant]
     Indication: CARDIAC DISORDER
     Dates: start: 1994
  21. FLONASE [Concomitant]
     Active Substance: FLUTICASONE PROPIONATE
     Indication: MULTIPLE ALLERGIES
     Dosage: 1 SPRAY EACH NOSTRIL BID, 50 MCG
     Route: 045
  22. NORVASC [Concomitant]
     Active Substance: AMLODIPINE BESYLATE
     Indication: BLOOD PRESSURE
     Dates: start: 2008
  23. POTASSIUM CL [Concomitant]
     Active Substance: POTASSIUM CHLORIDE
  24. TOPROL XL [Suspect]
     Active Substance: METOPROLOL SUCCINATE
     Indication: ANGINA PECTORIS
     Route: 048
     Dates: start: 2003
  25. NITROSTAT [Concomitant]
     Active Substance: NITROGLYCERIN
     Indication: CHEST PAIN
     Route: 060
  26. OMEGA 3 FLAX OIL [Concomitant]
  27. TYLENOL EXTRA STRENGTH [Concomitant]
     Active Substance: ACETAMINOPHEN
     Indication: ARTHRITIS
     Dosage: 2 TABS BID PRN
  28. TYLENOL EXTRA STRENGTH [Concomitant]
     Active Substance: ACETAMINOPHEN
     Indication: ARTHRITIS

REACTIONS (9)
  - Malaise [Unknown]
  - Myocardial infarction [Unknown]
  - Coronary artery stenosis [Unknown]
  - Body height decreased [Unknown]
  - Atrial fibrillation [Unknown]
  - Macular degeneration [Unknown]
  - Lung neoplasm malignant [Unknown]
  - Hypertonic bladder [Unknown]
  - Glaucoma [Unknown]

NARRATIVE: CASE EVENT DATE: 2002
